FAERS Safety Report 9097598 (Version 1)
Quarter: 2013Q1

REPORT INFORMATION
  Report Type: Report from Study
  Country: US (occurrence: US)
  Receive Date: 20130212
  Receipt Date: 20130212
  Transmission Date: 20140127
  Serious: No
  Sender: FDA-Public Use
  Company Number: US-VERTEX PHARMACEUTICALS INC.-2013-001124

PATIENT
  Age: 42 Year
  Sex: Male
  Weight: 72 kg

DRUGS (2)
  1. VX-950 (TELAPREVIR) [Suspect]
     Indication: HEPATITIS C
     Dosage: 750 MG, TID
     Route: 048
  2. IBUPROFEN                          /00109205/ [Concomitant]
     Dosage: 50/1.25

REACTIONS (4)
  - Influenza like illness [Unknown]
  - Pain [Unknown]
  - Diarrhoea [Unknown]
  - Anorectal discomfort [Unknown]
